FAERS Safety Report 9806231 (Version 3)
Quarter: 2014Q1

REPORT INFORMATION
  Report Type: Spontaneous
  Country: US (occurrence: US)
  Receive Date: 20140109
  Receipt Date: 20140304
  Transmission Date: 20141002
  Serious: Yes (Hospitalization)
  Sender: FDA-Public Use
  Company Number: US-BAXTER-2014BAX000721

PATIENT
  Age: 69 Year
  Sex: Female
  Weight: 83.91 kg

DRUGS (4)
  1. DIANEAL LOW CALCIUM [Suspect]
     Indication: PERITONEAL DIALYSIS
     Route: 033
  2. DIANEAL LOW CALCIUM [Suspect]
     Route: 033
     Dates: start: 201308
  3. DIANEAL LOW CALCIUM [Suspect]
     Indication: RENAL FAILURE CHRONIC
     Route: 033
     Dates: start: 201308
  4. DIANEAL LOW CALCIUM [Suspect]
     Route: 033
     Dates: start: 201308

REACTIONS (4)
  - Fall [Recovered/Resolved]
  - Joint injury [Unknown]
  - Ankle fracture [Recovering/Resolving]
  - Cerebrovascular accident [Unknown]
